FAERS Safety Report 16143554 (Version 1)
Quarter: 2019Q2

REPORT INFORMATION
  Report Type: Spontaneous
  Country: CA (occurrence: CA)
  Receive Date: 20190401
  Receipt Date: 20190401
  Transmission Date: 20190711
  Serious: Yes (Death, Other)
  Sender: FDA-Public Use
  Company Number: CA-PFIZER INC-2019136366

PATIENT
  Sex: Male

DRUGS (11)
  1. KALETRA [Interacting]
     Active Substance: LOPINAVIR\RITONAVIR
     Dosage: UNK
     Route: 048
  2. LAMIVUDINE. [Interacting]
     Active Substance: LAMIVUDINE
     Dosage: UNK
     Route: 065
  3. QUETIAPINE FUMARATE. [Interacting]
     Active Substance: QUETIAPINE FUMARATE
     Dosage: UNK
     Route: 065
  4. SUSTIVA [Interacting]
     Active Substance: EFAVIRENZ
     Dosage: UNK
     Route: 065
  5. BUPROPION. [Interacting]
     Active Substance: BUPROPION
     Dosage: UNK
     Route: 065
  6. SERTRALINE HCL [Suspect]
     Active Substance: SERTRALINE HYDROCHLORIDE
     Dosage: UNK
     Route: 065
  7. ATAZANAVIR SULFATE. [Interacting]
     Active Substance: ATAZANAVIR SULFATE
     Dosage: UNK
     Route: 065
  8. CLONAZEPAM. [Interacting]
     Active Substance: CLONAZEPAM
     Dosage: UNK
     Route: 065
  9. ZOPICLONE [Interacting]
     Active Substance: ZOPICLONE
     Dosage: UNK
     Route: 065
  10. VALPROIC ACID. [Interacting]
     Active Substance: VALPROIC ACID
     Dosage: UNK
     Route: 065
  11. RALTEGRAVIR POTASSIUM [Interacting]
     Active Substance: RALTEGRAVIR POTASSIUM
     Dosage: UNK
     Route: 065

REACTIONS (2)
  - Depression [Fatal]
  - Drug interaction [Fatal]
